FAERS Safety Report 10549213 (Version 5)
Quarter: 2015Q2

REPORT INFORMATION
  Report Type: Report from Study
  Country: FR (occurrence: FR)
  Receive Date: 20141028
  Receipt Date: 20150416
  Transmission Date: 20150821
  Serious: Yes (Death, Hospitalization, Other)
  Sender: FDA-Public Use
  Company Number: PHHO2012FR016444

PATIENT
  Age: 61 Year
  Sex: Male
  Weight: 74 kg

DRUGS (8)
  1. DOMPERIDONE [Concomitant]
     Active Substance: DOMPERIDONE
     Indication: PRODUCT USED FOR UNKNOWN INDICATION
     Dosage: 6 DF, QD (10 MG 6 TABLETS A DAY)
     Route: 048
  2. LOVENOX [Concomitant]
     Active Substance: ENOXAPARIN SODIUM
     Indication: PRODUCT USED FOR UNKNOWN INDICATION
     Dosage: 2000 IU, 0.2 ML
     Route: 065
  3. MIANSERINE [Concomitant]
     Active Substance: MIANSERIN HYDROCHLORIDE
     Indication: PRODUCT USED FOR UNKNOWN INDICATION
     Dosage: 30 MG, QD
     Route: 065
  4. AVODART [Concomitant]
     Active Substance: DUTASTERIDE
     Indication: PRODUCT USED FOR UNKNOWN INDICATION
     Dosage: 1 DF,  (0.5 MG CAPSULE) QD
     Route: 048
  5. SPASFON [Concomitant]
     Active Substance: PHLOROGLUCINOL
     Indication: PRODUCT USED FOR UNKNOWN INDICATION
     Dosage: 80 MG, (1-4 TAB DAILY (80 MG)
     Route: 065
  6. MECIR [Concomitant]
     Active Substance: TAMSULOSIN HYDROCHLORIDE
     Indication: PRODUCT USED FOR UNKNOWN INDICATION
     Dosage: 0.4 MG, QD
     Route: 048
  7. ZOLPIDEM [Concomitant]
     Active Substance: ZOLPIDEM\ZOLPIDEM TARTRATE
     Indication: PRODUCT USED FOR UNKNOWN INDICATION
     Dosage: 10 MG, (10 MG HALF TABLET DAILY)
     Route: 048
  8. AFINITOR [Suspect]
     Active Substance: EVEROLIMUS
     Indication: TRANSITIONAL CELL CARCINOMA
     Dosage: 5 MG, BID
     Route: 048
     Dates: start: 20120312, end: 20120420

REACTIONS (5)
  - Gamma-glutamyltransferase increased [Unknown]
  - General physical health deterioration [Not Recovered/Not Resolved]
  - Acute kidney injury [Fatal]
  - Escherichia sepsis [Unknown]
  - Mucosal inflammation [Unknown]

NARRATIVE: CASE EVENT DATE: 20120411
